FAERS Safety Report 4513752-7 (Version None)
Quarter: 2004Q4

REPORT INFORMATION
  Report Type: 
  Country: None (occurrence: None)
  Receive Date: 20041124
  Receipt Date: 20041108
  Transmission Date: 20050328
  Serious: Yes (Hospitalization)
  Sender: FDA-Public Use
  Company Number: CEL-2004-01974-SLO

PATIENT
  Age: 70 Year
  Sex: Female

DRUGS (13)
  1. ZAROXOLYN [Suspect]
     Indication: CARDIAC FAILURE
     Dosage: 2.5 MG, FREQUENCY UNKNOWN, PER ORAL
     Route: 048
     Dates: start: 20040401
  2. HERACILLIN (FLUCLOXACILLIN SODIUM) [Suspect]
     Indication: INFECTION
     Dosage: 3G DAILY, PER ORAL
     Route: 048
     Dates: start: 20040408, end: 20040415
  3. FUCIDINE CAP [Suspect]
     Indication: INFECTION
     Dosage: 250MG 6 TIMES PER DAY, PER ORAL
     Route: 048
     Dates: start: 20040408, end: 20040415
  4. METOPROLOL TARTRATE [Concomitant]
  5. LANSOPRAZOLE [Concomitant]
  6. COZAAR [Concomitant]
  7. FRAGMIN [Concomitant]
  8. CALCICHEW (CALCIUM CARBONATE) [Concomitant]
  9. FOSAMAX [Concomitant]
  10. ACETAMINOPHEN [Concomitant]
  11. AMITRIPTYLINE HCL [Concomitant]
  12. FUROSEMIDE [Concomitant]
  13. TRAMADOL HCL [Concomitant]

REACTIONS (5)
  - BLOOD BILIRUBIN INCREASED [None]
  - CREATINE URINE INCREASED [None]
  - GAMMA-GLUTAMYLTRANSFERASE INCREASED [None]
  - JAUNDICE [None]
  - WEIGHT DECREASED [None]
